FAERS Safety Report 15978865 (Version 2)
Quarter: 2019Q1

REPORT INFORMATION
  Report Type: Spontaneous
  Country: FR (occurrence: FR)
  Receive Date: 20190219
  Receipt Date: 20190304
  Transmission Date: 20190418
  Serious: Yes (Death)
  Sender: FDA-Public Use
  Company Number: FR-ORPHAN EUROPE-2062855

PATIENT
  Age: 6 Year
  Sex: Female

DRUGS (4)
  1. CARBAGLU [Suspect]
     Active Substance: CARGLUMIC ACID
     Indication: HYPERGLYCINAEMIA
     Dates: start: 201607, end: 20190107
  2. UCEDANE [Concomitant]
     Dates: start: 20190119, end: 20190131
  3. CARBAGLU [Suspect]
     Active Substance: CARGLUMIC ACID
     Dates: start: 20190115, end: 201901
  4. CARBAGLU [Suspect]
     Active Substance: CARGLUMIC ACID
     Dates: start: 20190131, end: 20190204

REACTIONS (2)
  - Hyperammonaemia [Fatal]
  - General physical health deterioration [Fatal]

NARRATIVE: CASE EVENT DATE: 201901
